FAERS Safety Report 9440924 (Version 2)
Quarter: 2013Q3

REPORT INFORMATION
  Report Type: Report from Study
  Country: JP (occurrence: JP)
  Receive Date: 20130805
  Receipt Date: 20130827
  Transmission Date: 20140515
  Serious: Yes (Hospitalization)
  Sender: FDA-Public Use
  Company Number: PHHY2013JP082803

PATIENT
  Age: 45 Year
  Sex: Female

DRUGS (21)
  1. LEPONEX / CLOZARIL [Suspect]
     Indication: SCHIZOPHRENIA, UNDIFFERENTIATED TYPE
     Dosage: 12.5 MG, QD
     Route: 048
     Dates: start: 20120329, end: 20120402
  2. LEPONEX / CLOZARIL [Suspect]
     Dosage: 25 MG, QD
     Route: 048
     Dates: start: 20120403, end: 20120820
  3. LEPONEX / CLOZARIL [Suspect]
     Dosage: 50 MG, QD
     Route: 048
     Dates: start: 20120821, end: 20120826
  4. LEPONEX / CLOZARIL [Suspect]
     Dosage: 100 MG, QD
     Route: 048
     Dates: start: 20120827, end: 20120827
  5. LEPONEX / CLOZARIL [Suspect]
     Dosage: 150 MG, QD
     Route: 048
     Dates: start: 20120828, end: 20120910
  6. LEPONEX / CLOZARIL [Suspect]
     Dosage: 200 MG, QD
     Route: 048
     Dates: start: 20120911, end: 20120917
  7. LEPONEX / CLOZARIL [Suspect]
     Dosage: 75 MG, QD
     Route: 048
     Dates: start: 20120918
  8. LEPONEX / CLOZARIL [Suspect]
     Dosage: 250 MG, QD
     Route: 048
  9. VEGETAMIN [Concomitant]
     Dosage: 50 MG, UNK
     Route: 048
  10. VEGETAMIN [Concomitant]
     Dosage: 25 MG, UNK
     Route: 048
     Dates: end: 20120409
  11. LIMAS [Concomitant]
     Indication: SCHIZOPHRENIA, UNDIFFERENTIATED TYPE
     Dosage: 1200 MG, UNK
     Route: 048
  12. LIMAS [Concomitant]
     Dosage: 600 MG, UNK
     Route: 048
  13. DEPAKENE [Concomitant]
     Indication: SCHIZOPHRENIA, UNDIFFERENTIATED TYPE
     Dosage: 1600 MG, UNK
     Route: 048
  14. DEPAKENE [Concomitant]
     Dosage: 1800 MG, UNK
     Route: 048
  15. DEPAKENE [Concomitant]
     Dosage: 1200 MG, UNK
     Route: 048
  16. TASMOLIN [Concomitant]
     Indication: SCHIZOPHRENIA, UNDIFFERENTIATED TYPE
     Dosage: 2 MG, UNK
     Route: 048
     Dates: start: 20120329, end: 20120402
  17. FLUNITRAZEPAM [Concomitant]
     Indication: SCHIZOPHRENIA, UNDIFFERENTIATED TYPE
     Dosage: 4 MG, UNK
     Route: 048
  18. FLUNITRAZEPAM [Concomitant]
     Dosage: 2 MG, UNK
     Route: 048
  19. SENNOSIDE [Concomitant]
     Indication: PROPHYLAXIS
     Dosage: 36 MG, UNK
     Route: 048
  20. SENNOSIDE [Concomitant]
     Dosage: 24 MG, UNK
     Route: 048
  21. GASMOTIN [Concomitant]
     Indication: PROPHYLAXIS
     Dosage: 15 MG, UNK
     Route: 048
     Dates: start: 20120410, end: 20120910

REACTIONS (2)
  - Appendicitis [Recovered/Resolved]
  - Abdominal pain [Unknown]
